FAERS Safety Report 9013985 (Version 1)
Quarter: 2013Q1

REPORT INFORMATION
  Report Type: Spontaneous
  Country: US (occurrence: None)
  Receive Date: 20130109
  Receipt Date: 20130109
  Transmission Date: 20140127
  Serious: Yes (Hospitalization)
  Sender: FDA-Public Use
  Company Number: None

PATIENT
  Age: 51 Year
  Sex: Male
  Weight: 72 kg

DRUGS (12)
  1. LINEZOLID [Suspect]
     Indication: PERITONITIS
     Dosage: 600MG BID PO
     Route: 048
     Dates: start: 20121227
  2. ESOMEPRAZOLE [Concomitant]
  3. AZATHIOPRINE [Concomitant]
  4. SULFASALAZINE [Concomitant]
  5. FOLIC ACID [Concomitant]
  6. CHOLESTYRAMINE [Concomitant]
  7. FISH OIL METOCLOPRAMIDE [Concomitant]
  8. FISH OIL [Concomitant]
  9. METOCLOPRAMIDE [Concomitant]
  10. NORCO [Concomitant]
  11. METOPROLOL [Concomitant]
  12. HEPARIN [Concomitant]

REACTIONS (1)
  - Electrolyte imbalance [None]
